FAERS Safety Report 9106359 (Version 1)
Quarter: 2013Q1

REPORT INFORMATION
  Report Type: Report from Study
  Country: CN (occurrence: CN)
  Receive Date: 20130220
  Receipt Date: 20130220
  Transmission Date: 20140127
  Serious: Yes (Death, Other)
  Sender: FDA-Public Use
  Company Number: CN-ROCHE-1190645

PATIENT
  Sex: 0

DRUGS (10)
  1. CAPECITABINE [Suspect]
     Indication: GASTRIC CANCER
     Dosage: DOSE: 625-825 MG/M2 DAILY ON DAY 1 TO 14
     Route: 048
  2. CAPECITABINE [Suspect]
     Indication: OESOPHAGEAL ADENOCARCINOMA
  3. EPIRUBICIN [Suspect]
     Indication: GASTRIC CANCER
     Route: 065
  4. EPIRUBICIN [Suspect]
     Indication: OESOPHAGEAL ADENOCARCINOMA
  5. CISPLATIN [Suspect]
     Indication: GASTRIC CANCER
     Route: 065
  6. CISPLATIN [Suspect]
     Indication: OESOPHAGEAL ADENOCARCINOMA
  7. OXALIPLATIN [Suspect]
     Indication: GASTRIC CANCER
     Route: 065
  8. OXALIPLATIN [Suspect]
     Indication: OESOPHAGEAL ADENOCARCINOMA
  9. 5-FU [Suspect]
     Indication: GASTRIC CANCER
     Route: 065
  10. 5-FU [Suspect]
     Indication: OESOPHAGEAL ADENOCARCINOMA

REACTIONS (13)
  - Febrile neutropenia [Fatal]
  - Hepatic failure [Fatal]
  - Nausea [Unknown]
  - Vomiting [Unknown]
  - Diarrhoea [Unknown]
  - Dysphagia [Unknown]
  - Decreased appetite [Unknown]
  - Neutropenia [Unknown]
  - Thrombocytopenia [Unknown]
  - Anaemia [Unknown]
  - Fatigue [Unknown]
  - Leukopenia [Unknown]
  - Post procedural swelling [Unknown]
